FAERS Safety Report 25228045 (Version 1)
Quarter: 2025Q2

REPORT INFORMATION
  Report Type: Spontaneous
  Country: SG (occurrence: SG)
  Receive Date: 20250423
  Receipt Date: 20250423
  Transmission Date: 20250717
  Serious: No
  Sender: ALKEM
  Company Number: SG-ALKEM LABORATORIES LIMITED-SG-ALKEM-2024-06405

PATIENT

DRUGS (2)
  1. DABIGATRAN ETEXILATE MESYLATE [Suspect]
     Active Substance: DABIGATRAN ETEXILATE MESYLATE
     Indication: Thrombosis
     Route: 065
  2. RIVAROXABAN [Suspect]
     Active Substance: RIVAROXABAN
     Indication: Thrombosis
     Route: 065

REACTIONS (1)
  - Haemorrhage [Unknown]
